FAERS Safety Report 6816789-8 (Version None)
Quarter: 2010Q3

REPORT INFORMATION
  Report Type: 
  Country: None (occurrence: None)
  Receive Date: 20100706
  Receipt Date: 20100702
  Transmission Date: 20110219
  Serious: Yes (Death, Hospitalization, Other)
  Sender: FDA-Public Use
  Company Number: PHHY2010AU18025

PATIENT
  Sex: Male
  Weight: 70 kg

DRUGS (2)
  1. CLOZARIL [Suspect]
     Indication: SCHIZOPHRENIA
     Dosage: 300 MG, UNK
     Dates: start: 19951003, end: 20100322
  2. VALPROATE SODIUM [Concomitant]
     Indication: EPILEPSY
     Dosage: 500 MG, BID

REACTIONS (25)
  - ABDOMINAL DISTENSION [None]
  - APPENDICITIS PERFORATED [None]
  - CARDIO-RESPIRATORY ARREST [None]
  - CONSTIPATION [None]
  - ENCEPHALITIS [None]
  - HYPOCHROMIC ANAEMIA [None]
  - HYPOXIC-ISCHAEMIC ENCEPHALOPATHY [None]
  - INTESTINAL PERFORATION [None]
  - LOSS OF CONSCIOUSNESS [None]
  - LYMPHOCYTE COUNT DECREASED [None]
  - MALAISE [None]
  - MYOCLONUS [None]
  - NAUSEA [None]
  - NEUTROPENIA [None]
  - NEUTROPENIC SEPSIS [None]
  - NEUTROPHIL COUNT DECREASED [None]
  - NEUTROPHILIA [None]
  - NORMOCHROMIC NORMOCYTIC ANAEMIA [None]
  - PERITONITIS [None]
  - SPHEROCYTIC ANAEMIA [None]
  - SURGERY [None]
  - TACHYPNOEA [None]
  - THROMBOCYTOPENIA [None]
  - VOMITING [None]
  - WHITE BLOOD CELL COUNT DECREASED [None]
